FAERS Safety Report 5625446-5 (Version None)
Quarter: 2008Q1

REPORT INFORMATION
  Report Type: 
  Country: None (occurrence: None)
  Receive Date: 20080211
  Receipt Date: 20080131
  Transmission Date: 20080703
  Serious: Yes (Other)
  Sender: FDA-Public Use
  Company Number: 2008SP002689

PATIENT
  Age: 49 Year
  Sex: Female

DRUGS (8)
  1. MIRALAX [Suspect]
     Indication: DRUG USE FOR UNKNOWN INDICATION
     Dosage: 1 DF;QD;PO
     Route: 048
     Dates: start: 20080126, end: 20080130
  2. MORPHINE [Concomitant]
  3. NEURONTIN [Concomitant]
  4. PROZAC [Concomitant]
  5. XANAX [Concomitant]
  6. LABETALOL HCL [Concomitant]
  7. CLONIDINE [Concomitant]
  8. CRESTOR [Concomitant]

REACTIONS (2)
  - CHEST PAIN [None]
  - HEADACHE [None]
